FAERS Safety Report 13497385 (Version 1)
Quarter: 2017Q2

REPORT INFORMATION
  Report Type: Spontaneous
  Country: GB (occurrence: GB)
  Receive Date: 20170428
  Receipt Date: 20170428
  Transmission Date: 20170830
  Serious: Yes (Life-Threatening, Other)
  Sender: FDA-Public Use
  Company Number: GB-BAYER-2017-077032

PATIENT
  Age: 43 Year
  Sex: Female
  Weight: 56 kg

DRUGS (7)
  1. EVOREL [ESTRADIOL] [Suspect]
     Active Substance: ESTRADIOL
     Indication: PREMENSTRUAL DYSPHORIC DISORDER
     Dosage: 100 ?G, QD
     Route: 062
     Dates: start: 2005, end: 2012
  2. ZOLADEX [Suspect]
     Active Substance: GOSERELIN ACETATE
     Indication: PREMENSTRUAL SYNDROME
  3. BECOTIDE [Concomitant]
     Active Substance: BECLOMETHASONE DIPROPIONATE
     Dosage: UNK
  4. MIRENA [Suspect]
     Active Substance: LEVONORGESTREL
     Indication: PREMENSTRUAL SYNDROME
     Dosage: 20 MCG/24HR, CONT
     Route: 015
  5. SALBUTAMOL [Concomitant]
     Active Substance: ALBUTEROL
  6. EVOREL [ESTRADIOL] [Suspect]
     Active Substance: ESTRADIOL
     Indication: PREMENSTRUAL SYNDROME
  7. CITALOPRAM [Concomitant]
     Active Substance: CITALOPRAM HYDROBROMIDE
     Dosage: 20 MG, UNK

REACTIONS (8)
  - Disturbance in attention [Unknown]
  - Nausea [Unknown]
  - Heart rate increased [Recovered/Resolved with Sequelae]
  - Heart rate irregular [Recovered/Resolved]
  - Chest discomfort [Not Recovered/Not Resolved]
  - Withdrawal syndrome [Recovered/Resolved]
  - Hypertension [Recovered/Resolved with Sequelae]
  - Headache [Unknown]

NARRATIVE: CASE EVENT DATE: 2007
